FAERS Safety Report 12961262 (Version 2)
Quarter: 2016Q4

REPORT INFORMATION
  Report Type: Spontaneous
  Country: US (occurrence: US)
  Receive Date: 20161121
  Receipt Date: 20161208
  Transmission Date: 20170207
  Serious: Yes (Other)
  Sender: FDA-Public Use
  Company Number: US-PFIZER INC-2016535114

PATIENT
  Age: 55 Year
  Sex: Female
  Weight: 73.48 kg

DRUGS (2)
  1. PROZAC [Suspect]
     Active Substance: FLUOXETINE HYDROCHLORIDE
     Indication: PANIC ATTACK
     Dosage: 40 MG, UNK
  2. CHANTIX [Suspect]
     Active Substance: VARENICLINE TARTRATE
     Indication: SMOKING CESSATION THERAPY
     Dosage: UNK

REACTIONS (4)
  - Extra dose administered [Unknown]
  - Suicidal ideation [Unknown]
  - Panic attack [Recovering/Resolving]
  - Abnormal dreams [Unknown]
